FAERS Safety Report 6346789-6 (Version None)
Quarter: 2009Q3

REPORT INFORMATION
  Report Type: 
  Country: None (occurrence: None)
  Receive Date: 20090910
  Receipt Date: 20090902
  Transmission Date: 20100115
  Serious: Yes (Other)
  Sender: FDA-Public Use
  Company Number: US-BIOGENIDEC-2009BI016734

PATIENT
  Age: 23 Year
  Sex: Female

DRUGS (1)
  1. TYSABRI [Suspect]
     Indication: MULTIPLE SCLEROSIS
     Route: 042
     Dates: start: 20090417

REACTIONS (4)
  - AMENORRHOEA [None]
  - BLOOD TEST ABNORMAL [None]
  - PITUITARY TUMOUR BENIGN [None]
  - VISUAL IMPAIRMENT [None]
